FAERS Safety Report 5268065-5 (Version None)
Quarter: 2007Q1

REPORT INFORMATION
  Report Type: 
  Country: None (occurrence: None)
  Receive Date: 20070314
  Receipt Date: 20070314
  Transmission Date: 20070707
  Serious: No
  Sender: FDA-Public Use
  Company Number: None

PATIENT
  Age: 80 Year
  Sex: Male
  Weight: 90.2658 kg

DRUGS (2)
  1. CAPTOPRIL [Suspect]
     Dosage: NOT ORDERED FOR PATIENT
     Dates: start: 20070312, end: 20070312
  2. CARVEDILOL [Suspect]
     Indication: BLOOD PRESSURE
     Dosage: 12.5 MG BID PO
     Route: 048
     Dates: start: 20070312, end: 20070313

REACTIONS (2)
  - INTERCEPTED DRUG DISPENSING ERROR [None]
  - MEDICATION ERROR [None]
